FAERS Safety Report 23569021 (Version 1)
Quarter: 2024Q1

REPORT INFORMATION
  Report Type: Spontaneous
  Country: US (occurrence: US)
  Receive Date: 20240227
  Receipt Date: 20240227
  Transmission Date: 20240410
  Serious: No
  Sender: FDA-Public Use
  Company Number: US-SANDOZ-SDZ2024US019856

PATIENT
  Sex: Female

DRUGS (1)
  1. RECLAST [Suspect]
     Active Substance: ZOLEDRONIC ACID
     Indication: Product used for unknown indication
     Dosage: 5MG/100ML
     Route: 065

REACTIONS (5)
  - Dizziness [Unknown]
  - Chest discomfort [Unknown]
  - Migraine [Unknown]
  - Dyspnoea [Unknown]
  - Insomnia [Unknown]
